FAERS Safety Report 10142310 (Version 1)
Quarter: 2014Q2

REPORT INFORMATION
  Report Type: Spontaneous
  Country: US (occurrence: US)
  Receive Date: 20140430
  Receipt Date: 20140430
  Transmission Date: 20141212
  Serious: No
  Sender: FDA-Public Use
  Company Number: US-009507513-1404USA012980

PATIENT
  Sex: Male

DRUGS (1)
  1. TINACTIN LIQUID SPRAY [Suspect]
     Indication: TINEA INFECTION
     Dosage: UNK, UNKNOWN
     Route: 061

REACTIONS (1)
  - Therapeutic product ineffective [Unknown]
